FAERS Safety Report 13098859 (Version 1)
Quarter: 2017Q1

REPORT INFORMATION
  Report Type: Spontaneous
  Country: FR (occurrence: FR)
  Receive Date: 20170109
  Receipt Date: 20170109
  Transmission Date: 20170428
  Serious: Yes (Hospitalization, Other)
  Sender: FDA-Public Use
  Company Number: W1-ALLERGAN-1700575US

PATIENT
  Age: 47 Year
  Sex: Male

DRUGS (4)
  1. ALPRAZOLAM. [Concomitant]
     Active Substance: ALPRAZOLAM
     Indication: PRODUCT USED FOR UNKNOWN INDICATION
     Dosage: 0.5 MG, UNK
     Route: 065
  2. MILNACIPRAN - BP [Suspect]
     Active Substance: MILNACIPRAN
     Indication: DEPRESSION
     Dosage: 50 MG, QD
     Route: 048
     Dates: start: 201603, end: 201603
  3. PROPANOLOL [Concomitant]
     Active Substance: PROPRANOLOL HYDROCHLORIDE
     Indication: PRODUCT USED FOR UNKNOWN INDICATION
     Dosage: 40 MG, UNK
     Route: 065
  4. AOTAL [Concomitant]
     Active Substance: ACAMPROSATE CALCIUM
     Indication: PRODUCT USED FOR UNKNOWN INDICATION
     Dosage: 333 MG, UNK
     Route: 048

REACTIONS (5)
  - Off label use [Unknown]
  - Liver disorder [Unknown]
  - Amaurosis [Unknown]
  - Alcohol withdrawal syndrome [Unknown]
  - Optic neuritis [Recovered/Resolved with Sequelae]

NARRATIVE: CASE EVENT DATE: 20160915
